FAERS Safety Report 11228526 (Version 1)
Quarter: 2015Q2

REPORT INFORMATION
  Report Type: Spontaneous
  Country: PT (occurrence: PT)
  Receive Date: 20150630
  Receipt Date: 20150630
  Transmission Date: 20150821
  Serious: Yes (Hospitalization, Other)
  Sender: FDA-Public Use
  Company Number: PT-ALEMBIC PHARMACEUTICALS LIMITED-2015SCAL000342

PATIENT
  Age: 35 Year
  Sex: Female

DRUGS (3)
  1. CENTELLA ASIATICA [Concomitant]
     Active Substance: CENTELLA ASIATICA
     Indication: WEIGHT CONTROL
     Dosage: UNK
  2. VENLAFAXINE HYDROCHLORIDE. [Suspect]
     Active Substance: VENLAFAXINE HYDROCHLORIDE
     Indication: DEPRESSION
     Dosage: UNK
  3. FUCUS VESICULOSUS [Concomitant]
     Active Substance: FUCUS VESICULOSUS
     Indication: WEIGHT CONTROL
     Dosage: UNK

REACTIONS (3)
  - Interstitial lung disease [Recovering/Resolving]
  - Cardiac failure [Recovering/Resolving]
  - Congestive cardiomyopathy [Recovering/Resolving]
